FAERS Safety Report 10144400 (Version 2)
Quarter: 2014Q2

REPORT INFORMATION
  Report Type: Spontaneous
  Country: GB (occurrence: GB)
  Receive Date: 20140430
  Receipt Date: 20140521
  Transmission Date: 20141212
  Serious: Yes (Hospitalization, Other)
  Sender: FDA-Public Use
  Company Number: GB-009507513-1404GBR014852

PATIENT
  Age: 43 Year
  Sex: Male

DRUGS (1)
  1. PROPECIA 1MG FILM-COATED TABLET [Suspect]
     Indication: ANDROGENETIC ALOPECIA
     Dosage: UNK
     Route: 048
     Dates: start: 200801, end: 201012

REACTIONS (19)
  - Suicide attempt [Unknown]
  - Depression [Unknown]
  - Personality change [Unknown]
  - Sexual dysfunction [Not Recovered/Not Resolved]
  - Genital disorder male [Unknown]
  - Gynaecomastia [Unknown]
  - Feminisation acquired [Unknown]
  - Hormone level abnormal [Unknown]
  - Feeling abnormal [Unknown]
  - Depressed mood [Unknown]
  - Quality of life decreased [Unknown]
  - Alcoholic [Unknown]
  - Hallucination, auditory [Unknown]
  - Panic attack [Unknown]
  - Sleep disorder [Unknown]
  - Gynaecomastia [Unknown]
  - Partner stress [Unknown]
  - Loss of employment [Unknown]
  - Erectile dysfunction [Unknown]
